FAERS Safety Report 8811815 (Version 2)
Quarter: 2012Q4

REPORT INFORMATION
  Report Type: 
  Country: CA (occurrence: CA)
  Receive Date: 20120927
  Receipt Date: 20121003
  Transmission Date: 20130627
  Serious: Yes (Other)
  Sender: FDA-Public Use
  Company Number: CA-GLAXOSMITHKLINE-A0994991A

PATIENT
  Sex: Male

DRUGS (1)
  1. AVODART [Suspect]
     Indication: LOWER URINARY TRACT SYMPTOMS
     Route: 065

REACTIONS (1)
  - Prostate cancer [Recovering/Resolving]
